FAERS Safety Report 26207876 (Version 1)
Quarter: 2025Q4

REPORT INFORMATION
  Report Type: Spontaneous
  Country: CN (occurrence: CN)
  Receive Date: 20251229
  Receipt Date: 20251229
  Transmission Date: 20260118
  Serious: Yes (Hospitalization)
  Sender: ELI LILLY AND COMPANY
  Company Number: CN-Merck Healthcare KGaA-2025065741

PATIENT
  Age: 72 Year
  Sex: Male
  Weight: 39 kg

DRUGS (6)
  1. ERBITUX [Suspect]
     Active Substance: CETUXIMAB
     Indication: Tongue neoplasm malignant stage unspecified
     Dosage: 570 MG, UNK
     Route: 041
     Dates: start: 20251127, end: 20251127
  2. NEDAPLATIN [Suspect]
     Active Substance: NEDAPLATIN
     Indication: Tongue neoplasm malignant stage unspecified
     Dosage: 40 MG, DAILY
     Route: 041
     Dates: start: 20251128, end: 20251128
  3. NEDAPLATIN [Suspect]
     Active Substance: NEDAPLATIN
     Dosage: 50 MG, DAILY
     Route: 041
     Dates: start: 20251129
  4. CAPECITABINE [Suspect]
     Active Substance: CAPECITABINE
     Indication: Tongue neoplasm malignant stage unspecified
     Dosage: 1375 MG, UNK
     Route: 048
     Dates: start: 20251103, end: 20251203
  5. SODIUM CHLORIDE [Concomitant]
     Active Substance: SODIUM CHLORIDE
     Indication: Medication dilution
     Route: 041
     Dates: start: 20251127, end: 20251127
  6. SODIUM CHLORIDE [Concomitant]
     Active Substance: SODIUM CHLORIDE
     Route: 041
     Dates: start: 20251128, end: 20251129

REACTIONS (2)
  - Myelosuppression [Recovering/Resolving]
  - Infection [Unknown]

NARRATIVE: CASE EVENT DATE: 20251211
